FAERS Safety Report 20490224 (Version 1)
Quarter: 2022Q1

REPORT INFORMATION
  Report Type: Spontaneous
  Country: CN (occurrence: None)
  Receive Date: 20220218
  Receipt Date: 20220218
  Transmission Date: 20220423
  Serious: Yes (Other)
  Sender: FDA-Public Use
  Company Number: 2022A071197

PATIENT
  Age: 13880 Day
  Sex: Female
  Weight: 60 kg

DRUGS (3)
  1. QUETIAPINE FUMARATE [Suspect]
     Active Substance: QUETIAPINE FUMARATE
     Indication: Affect lability
     Route: 048
     Dates: start: 20211221, end: 20220110
  2. QUETIAPINE FUMARATE [Suspect]
     Active Substance: QUETIAPINE FUMARATE
     Indication: Affect lability
     Route: 048
     Dates: start: 20220110, end: 20220121
  3. VORTIOXETINE HYDROBROMIDE [Concomitant]
     Active Substance: VORTIOXETINE HYDROBROMIDE
     Indication: Affect lability
     Route: 048
     Dates: start: 20220102, end: 20220110

REACTIONS (3)
  - Electrocardiogram QT prolonged [Recovering/Resolving]
  - Bundle branch block right [Recovering/Resolving]
  - Ventricular extrasystoles [Recovering/Resolving]

NARRATIVE: CASE EVENT DATE: 20220110
